FAERS Safety Report 11631882 (Version 1)
Quarter: 2015Q4

REPORT INFORMATION
  Report Type: Spontaneous
  Country: CA (occurrence: None)
  Receive Date: 20151013
  Receipt Date: 20151013
  Transmission Date: 20160304
  Serious: Yes (Hospitalization, Disabling)
  Sender: FDA-Public Use
  Company Number: None

PATIENT
  Age: 70 Year
  Sex: Female
  Weight: 61.24 kg

DRUGS (4)
  1. CALCIUM [Concomitant]
     Active Substance: CALCIUM
  2. VITAMIN D [Concomitant]
     Active Substance: CHOLECALCIFEROL
  3. MULTIVTIAMINS [Concomitant]
  4. ACTONEL [Suspect]
     Active Substance: RISEDRONATE SODIUM
     Indication: OSTEOPOROSIS

REACTIONS (3)
  - Groin pain [None]
  - Fall [None]
  - Femur fracture [None]

NARRATIVE: CASE EVENT DATE: 20151004
